FAERS Safety Report 4754356-0 (Version None)
Quarter: 2005Q3

REPORT INFORMATION
  Report Type: 
  Country: None (occurrence: None)
  Receive Date: 20050826
  Receipt Date: 20041111
  Transmission Date: 20060218
  Serious: Yes (Death, Other)
  Sender: FDA-Public Use
  Company Number: 2014179

PATIENT
  Age: 35 Year
  Sex: Male
  Weight: 109 kg

DRUGS (4)
  1. OXYCONTIN [Suspect]
  2. OXYCODONE HCL [Suspect]
  3. HYDROCODONE BITARTRATE [Suspect]
  4. DIAZEPAM [Suspect]

REACTIONS (2)
  - ACCIDENTAL OVERDOSE [None]
  - DRUG DEPENDENCE [None]
